FAERS Safety Report 5514067-0 (Version None)
Quarter: 2007Q4

REPORT INFORMATION
  Report Type: 
  Country: None (occurrence: None)
  Receive Date: 20071113
  Receipt Date: 20040924
  Transmission Date: 20080405
  Serious: Yes (Other)
  Sender: FDA-Public Use
  Company Number: CA-ASTRAZENECA-2004UW20300

PATIENT
  Age: 76 Year
  Sex: Female

DRUGS (7)
  1. ATACAND [Suspect]
     Route: 048
  2. UNSPECIFIED MEDICATION [Interacting]
  3. BROMAZEPAM [Concomitant]
  4. LIPITOR [Concomitant]
  5. METOPROLOL TARTRATE [Concomitant]
  6. NORVASC [Concomitant]
  7. RIVASA [Concomitant]

REACTIONS (6)
  - BLOOD CREATININE INCREASED [None]
  - BRADYCARDIA [None]
  - DRUG INTERACTION [None]
  - HYPERKALAEMIA [None]
  - RENAL FAILURE ACUTE [None]
  - SYNCOPE [None]
